FAERS Safety Report 11613885 (Version 2)
Quarter: 2015Q4

REPORT INFORMATION
  Report Type: Spontaneous
  Country: US (occurrence: None)
  Receive Date: 20151008
  Receipt Date: 20151027
  Transmission Date: 20160304
  Serious: Yes (Other)
  Sender: FDA-Public Use
  Company Number: US-MDT-ADR-2015-01927

PATIENT
  Age: 49 Year
  Sex: Female

DRUGS (1)
  1. BACLOFEN INTRATHECAL 500 MCG/ML [Suspect]
     Active Substance: BACLOFEN
     Indication: MUSCLE SPASTICITY

REACTIONS (4)
  - No therapeutic response [None]
  - Complication of device removal [None]
  - Disease recurrence [None]
  - Medical device change [None]
